FAERS Safety Report 8529661-2 (Version None)
Quarter: 2012Q3

REPORT INFORMATION
  Report Type: 
  Country: None (occurrence: None)
  Receive Date: 20120723
  Receipt Date: 20120709
  Transmission Date: 20120928
  Serious: Yes (Other)
  Sender: FDA-Public Use
  Company Number: CN-MYLANLABS-2012S1014271

PATIENT
  Sex: Female

DRUGS (1)
  1. WARFARIN SODIUM [Suspect]
     Indication: ANTICOAGULANT THERAPY
     Dosage: ALL PATIENTS IN STUDY RECEIVED { 5 MG/DAY
     Route: 048

REACTIONS (2)
  - CARDIAC FAILURE [None]
  - MATERNAL EXPOSURE DURING PREGNANCY [None]
